FAERS Safety Report 14165140 (Version 10)
Quarter: 2022Q4

REPORT INFORMATION
  Report Type: Spontaneous
  Country: US (occurrence: US)
  Receive Date: 20171107
  Receipt Date: 20221206
  Transmission Date: 20230113
  Serious: Yes (Other)
  Sender: FDA-Public Use
  Company Number: US-PFIZER INC-2017474236

PATIENT
  Age: 58 Year
  Sex: Male
  Weight: 92.971 kg

DRUGS (1)
  1. ELELYSO [Suspect]
     Active Substance: TALIGLUCERASE ALFA
     Dosage: 400 IU (EVERY OTHER WEEK)
     Dates: start: 2012

REACTIONS (5)
  - Device related infection [Recovered/Resolved]
  - Device occlusion [Recovered/Resolved]
  - Cellulitis [Recovered/Resolved]
  - Circumstance or information capable of leading to medication error [Unknown]
  - COVID-19 [Recovered/Resolved]

NARRATIVE: CASE EVENT DATE: 20190101
